FAERS Safety Report 5132550-7 (Version None)
Quarter: 2006Q4

REPORT INFORMATION
  Report Type: 
  Country: None (occurrence: None)
  Receive Date: 20061017
  Receipt Date: 20061009
  Transmission Date: 20070319
  Serious: Yes (Hospitalization)
  Sender: FDA-Public Use
  Company Number: 229776

PATIENT
  Age: 55 Year
  Sex: Male

DRUGS (6)
  1. XOLAIR [Suspect]
     Indication: ASTHMA
     Dosage: 150 MG, 1 MONTH, SUBCUTANEOUS
     Route: 058
     Dates: start: 20060823
  2. BAMBUTEROL (BAMBUTEROL) [Concomitant]
  3. FORADIL [Concomitant]
  4. MEDROL [Concomitant]
  5. SINGULAIR [Concomitant]
  6. LANSOPRAZOLE [Concomitant]

REACTIONS (6)
  - GENERAL PHYSICAL HEALTH DETERIORATION [None]
  - INJECTION SITE ERYTHEMA [None]
  - INJECTION SITE PRURITUS [None]
  - NON-CARDIAC CHEST PAIN [None]
  - PULMONARY EMBOLISM [None]
  - PYREXIA [None]
